FAERS Safety Report 18265697 (Version 3)
Quarter: 2020Q4

REPORT INFORMATION
  Report Type: Report from Study
  Country: None (occurrence: US)
  Receive Date: 20200914
  Receipt Date: 20201120
  Transmission Date: 20210113
  Serious: Yes (Other)
  Sender: FDA-Public Use
  Company Number: US-ABBVIE-20K-163-3557930-00

PATIENT
  Age: 34 Year
  Sex: Female
  Weight: 112.59 kg

DRUGS (20)
  1. HUMIRA [Suspect]
     Active Substance: ADALIMUMAB
     Route: 058
     Dates: start: 2016, end: 2016
  2. HUMIRA [Suspect]
     Active Substance: ADALIMUMAB
     Route: 058
     Dates: start: 201910, end: 202008
  3. CANNABIS [Concomitant]
     Active Substance: CANNABIS SATIVA SUBSP. INDICA TOP
     Indication: PRODUCT USED FOR UNKNOWN INDICATION
  4. HUMIRA [Suspect]
     Active Substance: ADALIMUMAB
     Route: 058
     Dates: start: 2013, end: 2014
  5. PEPCID [Concomitant]
     Active Substance: FAMOTIDINE
     Indication: BARRETT^S OESOPHAGUS
  6. BACLOFEN. [Concomitant]
     Active Substance: BACLOFEN
     Indication: MUSCLE SPASMS
  7. FLOVENT [Concomitant]
     Active Substance: FLUTICASONE PROPIONATE
     Indication: RHINITIS
  8. HUMIRA [Suspect]
     Active Substance: ADALIMUMAB
     Indication: PSORIATIC ARTHROPATHY
     Route: 058
     Dates: start: 2012, end: 2012
  9. FERROUS SULFATE. [Concomitant]
     Active Substance: FERROUS SULFATE
     Indication: SUPPLEMENTATION THERAPY
  10. ZADITOR [Concomitant]
     Active Substance: KETOTIFEN FUMARATE
     Indication: RHINITIS
  11. HUMIRA [Suspect]
     Active Substance: ADALIMUMAB
     Indication: HIDRADENITIS
     Route: 058
     Dates: start: 2012, end: 2013
  12. LEVOTHYROXINE. [Concomitant]
     Active Substance: LEVOTHYROXINE
     Indication: HYPOTHYROIDISM
  13. LIOTHYRONINE [Concomitant]
     Active Substance: LIOTHYRONINE
     Indication: HYPOTHYROIDISM
  14. PEPCID [Concomitant]
     Active Substance: FAMOTIDINE
     Indication: HERNIA
  15. IBUPROFEN. [Concomitant]
     Active Substance: IBUPROFEN
     Indication: PAIN
  16. AZELASTINE. [Concomitant]
     Active Substance: AZELASTINE HYDROCHLORIDE
     Indication: RHINITIS
  17. VITAMIN B12 [Concomitant]
     Active Substance: CYANOCOBALAMIN
     Indication: SUPPLEMENTATION THERAPY
  18. HUMIRA [Suspect]
     Active Substance: ADALIMUMAB
     Route: 058
     Dates: start: 2017, end: 2018
  19. PEPCID [Concomitant]
     Active Substance: FAMOTIDINE
     Indication: GASTROOESOPHAGEAL REFLUX DISEASE
  20. FLOVENT [Concomitant]
     Active Substance: FLUTICASONE PROPIONATE
     Indication: ASTHMA

REACTIONS (29)
  - Cockroach allergy [Unknown]
  - Allergy to animal [Unknown]
  - Hepatic steatosis [Unknown]
  - Seasonal allergy [Unknown]
  - Device issue [Unknown]
  - Carpal tunnel syndrome [Recovering/Resolving]
  - Cystocele [Unknown]
  - Hysterectomy [Unknown]
  - Tendon disorder [Unknown]
  - Rash pustular [Not Recovered/Not Resolved]
  - Hepatomegaly [Unknown]
  - Thyroid mass [Unknown]
  - Oedema peripheral [Unknown]
  - Intervertebral disc protrusion [Unknown]
  - Enterocele [Unknown]
  - Tracheal resection [Unknown]
  - Bronchitis [Recovered/Resolved]
  - Psoriatic arthropathy [Unknown]
  - Vertebral foraminal stenosis [Unknown]
  - Bone fissure [Unknown]
  - Osteoarthritis [Unknown]
  - Wrong technique in product usage process [Recovered/Resolved]
  - Lung hyperinflation [Unknown]
  - Cyst [Not Recovered/Not Resolved]
  - Allergy to plants [Unknown]
  - Immunodeficiency [Unknown]
  - Medical procedure [Unknown]
  - Mycotic allergy [Unknown]
  - Adenoma benign [Unknown]

NARRATIVE: CASE EVENT DATE: 2013
